FAERS Safety Report 20283027 (Version 1)
Quarter: 2022Q1

REPORT INFORMATION
  Report Type: Report from Study
  Country: CA (occurrence: CA)
  Receive Date: 20220103
  Receipt Date: 20220103
  Transmission Date: 20220423
  Serious: Yes (Hospitalization)
  Sender: FDA-Public Use
  Company Number: CA-Taiho Oncology Inc-EU-2021-04108

PATIENT
  Age: 53 Year
  Sex: Female

DRUGS (1)
  1. LONSURF [Suspect]
     Active Substance: TIPIRACIL HYDROCHLORIDE\TRIFLURIDINE
     Indication: Colorectal cancer metastatic
     Dosage: CYCLE, DOSE AND FREQUENCY UNKNOWN
     Route: 048
     Dates: start: 20211105

REACTIONS (1)
  - Peripheral swelling [Unknown]
